FAERS Safety Report 8055388-X (Version None)
Quarter: 2012Q1

REPORT INFORMATION
  Report Type: 
  Country: None (occurrence: None)
  Receive Date: 20120119
  Receipt Date: 20120118
  Transmission Date: 20120608
  Serious: Yes (Hospitalization)
  Sender: FDA-Public Use
  Company Number: IT-SANOFI-AVENTIS-2012SA003445

PATIENT
  Age: 89 Year
  Sex: Male

DRUGS (5)
  1. LASIX [Suspect]
     Indication: OEDEMA
     Route: 048
     Dates: start: 20090101, end: 20111222
  2. ENALAPRIL MALEATE [Concomitant]
     Route: 048
  3. AMIODARONE HCL [Suspect]
     Route: 048
     Dates: start: 20090101, end: 20111222
  4. COUMADIN [Concomitant]
     Route: 048
  5. LEVOTHYROXINE SODIUM [Concomitant]
     Indication: HYPOTHYROIDISM
     Route: 048

REACTIONS (3)
  - BUNDLE BRANCH BLOCK LEFT [None]
  - ATRIOVENTRICULAR BLOCK FIRST DEGREE [None]
  - SINUS BRADYCARDIA [None]
